FAERS Safety Report 8211117-8 (Version None)
Quarter: 2012Q1

REPORT INFORMATION
  Report Type: 
  Country: None (occurrence: None)
  Receive Date: 20120315
  Receipt Date: 20120314
  Transmission Date: 20120608
  Serious: Yes (Death, Hospitalization)
  Sender: FDA-Public Use
  Company Number: PHHY2011CR65379

PATIENT
  Sex: Female

DRUGS (6)
  1. SEROLUX [Concomitant]
  2. LORAZEPAM [Concomitant]
  3. VASTAREL [Concomitant]
  4. ENZYPRIDE [Concomitant]
  5. DIOVAN [Suspect]
     Indication: HYPERTENSION
     Dosage: 160 MG, DAILY
     Route: 048
  6. NEXIUM [Concomitant]

REACTIONS (4)
  - DIABETIC COMPLICATION [None]
  - HYPERTENSIVE CRISIS [None]
  - ARRHYTHMIA [None]
  - APPENDICITIS PERFORATED [None]
